FAERS Safety Report 5318143-7 (Version None)
Quarter: 2007Q1

REPORT INFORMATION
  Report Type: 
  Country: None (occurrence: None)
  Receive Date: 20070201
  Receipt Date: 20060630
  Transmission Date: 20070707
  Serious: Yes (Hospitalization, Other)
  Sender: FDA-Public Use
  Company Number: WAES 0607USA00105

PATIENT
  Age: 48 Year
  Sex: Male

DRUGS (1)
  1. PRIMAXIN [Suspect]
     Indication: ILEOSTOMY
     Dosage: 500 MG/Q8H/IV
     Route: 042
     Dates: start: 20060628, end: 20060630

REACTIONS (1)
  - NEUTROPENIA [None]
